FAERS Safety Report 6180481-6 (Version None)
Quarter: 2009Q2

REPORT INFORMATION
  Report Type: 
  Country: None (occurrence: None)
  Receive Date: 20090504
  Receipt Date: 20090504
  Transmission Date: 20091009
  Serious: Yes (Hospitalization)
  Sender: FDA-Public Use
  Company Number: None

PATIENT
  Age: 35 Year
  Sex: Female
  Weight: 109.4 kg

DRUGS (20)
  1. ADRIAMYCIN RDF [Suspect]
     Indication: BREAST CANCER
     Dosage: 60MG/M2 EVERY 3 WEEKS IV
     Route: 042
     Dates: start: 20090213, end: 20090421
  2. CYCLOPHOSPHAMIDE [Suspect]
     Indication: BREAST CANCER
     Dosage: 600MG/M2 EVERY 3 WEEKS IV
     Route: 042
     Dates: start: 20090213, end: 20090421
  3. TRICOR [Concomitant]
  4. JANUMET [Concomitant]
  5. GLIPIZIDE [Concomitant]
  6. NEXIUM [Concomitant]
  7. LEXAPRO [Concomitant]
  8. ACETAMINOPHEN [Concomitant]
  9. IBUPROFEN [Concomitant]
  10. VITAMIN D [Concomitant]
  11. ALLEGRA [Concomitant]
  12. ZOFRAN [Concomitant]
  13. DEXAMETHASONE 4MG TAB [Concomitant]
  14. APREPITANT [Concomitant]
  15. PROCHLORPERAZINE [Concomitant]
  16. LORAZEPAM [Concomitant]
  17. TUCKS PAD [Concomitant]
  18. VICODIN [Concomitant]
  19. NEULASTA [Concomitant]
  20. MYCOSTATIN [Concomitant]

REACTIONS (7)
  - BONE PAIN [None]
  - HAEMOGLOBIN DECREASED [None]
  - HEADACHE [None]
  - INFLUENZA [None]
  - NEUTROPHIL COUNT DECREASED [None]
  - PLATELET COUNT DECREASED [None]
  - WHITE BLOOD CELL COUNT DECREASED [None]
